FAERS Safety Report 9189204 (Version 2)
Quarter: 2013Q1

REPORT INFORMATION
  Report Type: Spontaneous
  Country: JP (occurrence: JP)
  Receive Date: 20130326
  Receipt Date: 20130329
  Transmission Date: 20140127
  Serious: Yes (Hospitalization)
  Sender: FDA-Public Use
  Company Number: JP-009507513-1303JPN011913

PATIENT
  Age: 72 Year
  Sex: Male
  Weight: 77 kg

DRUGS (7)
  1. PEGINTRON [Suspect]
     Indication: CHRONIC HEPATITIS C
     Dosage: 1.5 MICROGRAM PER KILOGRAM, QW, DAILY DOSE UNKNOWN
     Route: 058
     Dates: start: 20130208
  2. REBETOL [Suspect]
     Indication: CHRONIC HEPATITIS C
     Dosage: 400 MG, QD
     Route: 048
     Dates: start: 20130208, end: 20130228
  3. REBETOL [Suspect]
     Dosage: 200 MG, QD
     Route: 048
     Dates: start: 20130301, end: 20130307
  4. REBETOL [Suspect]
     Dosage: 100 MG, QD
     Route: 048
     Dates: start: 20130308
  5. TELAVIC [Suspect]
     Indication: CHRONIC HEPATITIS C
     Dosage: 1500 MG, QD
     Route: 048
     Dates: start: 20130208, end: 20130311
  6. NORVASC OD [Concomitant]
     Dosage: 5 MG, QD, FORMULATION POR
     Route: 048
  7. FEBURIC [Concomitant]
     Dosage: 20 MG, QD, FORMULATION POR
     Route: 048

REACTIONS (1)
  - Oedema peripheral [Recovered/Resolved]
